FAERS Safety Report 18110480 (Version 2)
Quarter: 2020Q3

REPORT INFORMATION
  Report Type: Spontaneous
  Country: AT (occurrence: AT)
  Receive Date: 20200804
  Receipt Date: 20200825
  Transmission Date: 20201103
  Serious: Yes (Hospitalization, Other)
  Sender: FDA-Public Use
  Company Number: NVSC2020AT216408

PATIENT
  Age: 62 Year
  Sex: Male
  Weight: 98.5 kg

DRUGS (1)
  1. KYMRIAH [Suspect]
     Active Substance: TISAGENLECLEUCEL
     Indication: DIFFUSE LARGE B-CELL LYMPHOMA
     Dosage: UNK
     Route: 042
     Dates: start: 20190930, end: 20190930

REACTIONS (5)
  - Central nervous system lesion [Not Recovered/Not Resolved]
  - Paresis [Unknown]
  - Diffuse large B-cell lymphoma [Not Recovered/Not Resolved]
  - Diplopia [Unknown]
  - Malignant neoplasm progression [Not Recovered/Not Resolved]

NARRATIVE: CASE EVENT DATE: 20200714
